FAERS Safety Report 13976842 (Version 1)
Quarter: 2017Q3

REPORT INFORMATION
  Report Type: Spontaneous
  Country: US (occurrence: US)
  Receive Date: 20170915
  Receipt Date: 20170915
  Transmission Date: 20171128
  Serious: Yes (Hospitalization)
  Sender: FDA-Public Use
  Company Number: US-SUNOVION-2017SUN004052

PATIENT
  Age: 50 Year
  Sex: Female

DRUGS (2)
  1. LATUDA [Suspect]
     Active Substance: LURASIDONE HYDROCHLORIDE
     Dosage: LATUDA 40 MG (1/2 TABLET ORALLY EVERYDAY)
     Route: 048
  2. LATUDA [Suspect]
     Active Substance: LURASIDONE HYDROCHLORIDE
     Indication: PRODUCT USED FOR UNKNOWN INDICATION
     Dosage: LATUDA 40 (1 TABLET ORALLY EVERYDAY)
     Route: 048

REACTIONS (2)
  - Drug ineffective [Unknown]
  - Psychotic disorder [Unknown]
